FAERS Safety Report 6183117-3 (Version None)
Quarter: 2009Q2

REPORT INFORMATION
  Report Type: 
  Country: None (occurrence: None)
  Receive Date: 20090507
  Receipt Date: 20090429
  Transmission Date: 20091009
  Serious: Yes (Hospitalization)
  Sender: FDA-Public Use
  Company Number: PHHY2009ES16235

PATIENT
  Sex: Male

DRUGS (6)
  1. MYFORTIC [Suspect]
     Indication: TRANSPLANT
     Dosage: 720 MG DAILY
     Route: 048
     Dates: start: 20000101
  2. DACORTIN [Interacting]
     Indication: TRANSPLANT
     Dosage: 5 MG DAILY
     Route: 048
     Dates: start: 20000101
  3. PROGRAF [Interacting]
     Indication: TRANSPLANT
     Dosage: 8 MG DAILY
     Route: 048
     Dates: start: 20060601, end: 20080620
  4. LOSARTAN POSTASSIUM [Concomitant]
     Indication: HYPERTENSION
     Dosage: 50 MG
     Dates: start: 20080101
  5. TRAMADOL HCL [Concomitant]
     Indication: OSTEOARTHRITIS
     Dosage: UNK
     Dates: start: 20070101
  6. ZYLORIC [Concomitant]
     Indication: HYPERURICAEMIA
     Dosage: 100 MG

REACTIONS (7)
  - CEREBRAL ATROPHY [None]
  - CEREBRAL ISCHAEMIA [None]
  - CONDUCT DISORDER [None]
  - DISORIENTATION [None]
  - DRUG INTERACTION [None]
  - ENCEPHALOPATHY [None]
  - NERVOUS SYSTEM DISORDER [None]
